FAERS Safety Report 20622810 (Version 2)
Quarter: 2023Q1

REPORT INFORMATION
  Report Type: Report from Study
  Country: FR (occurrence: FR)
  Receive Date: 20220322
  Receipt Date: 20230317
  Transmission Date: 20230417
  Serious: Yes (Hospitalization)
  Sender: FDA-Public Use
  Company Number: FR-SERVIER-S22000293

PATIENT

DRUGS (6)
  1. PEGASPARGASE [Suspect]
     Active Substance: PEGASPARGASE
     Indication: Acute lymphocytic leukaemia
     Dosage: 875 IU, ON D8
     Route: 042
     Dates: start: 20211021, end: 20211021
  2. VINCRISTINE SULFATE [Suspect]
     Active Substance: VINCRISTINE SULFATE
     Indication: Acute lymphocytic leukaemia
     Dosage: 1.1 MG, D29, D36
     Route: 042
     Dates: start: 20211103, end: 20211110
  3. DEXAMETHASONE [Suspect]
     Active Substance: DEXAMETHASONE
     Indication: Acute lymphocytic leukaemia
     Dosage: 4 MG, D1 - D5, D29- D33
     Route: 042
     Dates: start: 20211006, end: 20211225
  4. MERCAPTOPURINE [Suspect]
     Active Substance: MERCAPTOPURINE
     Indication: Acute lymphocytic leukaemia
     Dosage: 34 MG, D1 - D21, D29 - D49, D57 - D77
     Route: 048
     Dates: start: 20211006, end: 20211228
  5. METHOTREXATE [Suspect]
     Active Substance: METHOTREXATE
     Indication: Acute lymphocytic leukaemia
     Dosage: 17.5 MG, ON D8, 15, 22, 36, 43, 50 AND 64
     Route: 048
     Dates: start: 20211006, end: 20211228
  6. METHOTREXATE [Suspect]
     Active Substance: METHOTREXATE
     Dosage: 12 MG, D2, D30, D58
     Route: 037
     Dates: start: 20211007, end: 20211222

REACTIONS (2)
  - COVID-19 [Recovering/Resolving]
  - Campylobacter infection [Recovered/Resolved]

NARRATIVE: CASE EVENT DATE: 20211110
